FAERS Safety Report 10377957 (Version 2)
Quarter: 2014Q3

REPORT INFORMATION
  Report Type: Report from Study
  Country: SV (occurrence: SV)
  Receive Date: 20140812
  Receipt Date: 20140911
  Transmission Date: 20150326
  Serious: Yes (Death, Hospitalization, Other)
  Sender: FDA-Public Use
  Company Number: PHHY2014SV099034

PATIENT
  Sex: Male
  Weight: 69 kg

DRUGS (1)
  1. GLIVEC [Suspect]
     Active Substance: IMATINIB MESYLATE
     Indication: CHRONIC MYELOID LEUKAEMIA
     Dosage: 400 MG, QD
     Dates: start: 20040715

REACTIONS (4)
  - Anaphylactic reaction [Fatal]
  - Septic shock [Unknown]
  - Blast crisis in myelogenous leukaemia [Unknown]
  - Neutropenia [Recovering/Resolving]
